FAERS Safety Report 9502734 (Version 1)
Quarter: 2013Q3

REPORT INFORMATION
  Report Type: Spontaneous
  Country: CA (occurrence: CA)
  Receive Date: 20130906
  Receipt Date: 20130906
  Transmission Date: 20140515
  Serious: Yes (Other)
  Sender: FDA-Public Use
  Company Number: CA-ROCHE-1271024

PATIENT
  Age: 71 Year
  Sex: Female

DRUGS (3)
  1. CEFTRIAXONE [Suspect]
     Indication: PRODUCT USED FOR UNKNOWN INDICATION
     Dosage: THERAPY DURATION: 28.0 DAYS
     Route: 042
  2. HYDROCHLOROTHIAZIDE [Concomitant]
     Route: 065
  3. RAMIPRIL [Concomitant]
     Route: 065

REACTIONS (4)
  - Conjunctivitis viral [Unknown]
  - Fatigue [Unknown]
  - Neutropenia [Unknown]
  - Pyrexia [Unknown]
